FAERS Safety Report 25665930 (Version 2)
Quarter: 2025Q3

REPORT INFORMATION
  Report Type: Spontaneous
  Country: US (occurrence: US)
  Receive Date: 20250811
  Receipt Date: 20250825
  Transmission Date: 20251021
  Serious: Yes (Life-Threatening, Hospitalization)
  Sender: TEVA
  Company Number: US-TEVA-VS-3359815

PATIENT
  Age: 23 Year
  Sex: Female

DRUGS (3)
  1. NALOXONE [Suspect]
     Active Substance: NALOXONE
     Indication: Accidental overdose
     Route: 065
  2. DIAZEPAM [Concomitant]
     Active Substance: DIAZEPAM
     Indication: Seizure
     Route: 065
  3. DEVICE [Suspect]
     Active Substance: DEVICE

REACTIONS (1)
  - Non-cardiogenic pulmonary oedema [Recovered/Resolved]
